FAERS Safety Report 16119841 (Version 6)
Quarter: 2019Q4

REPORT INFORMATION
  Report Type: Spontaneous
  Country: US (occurrence: US)
  Receive Date: 20190326
  Receipt Date: 20191220
  Transmission Date: 20200122
  Serious: Yes (Other)
  Sender: FDA-Public Use
  Company Number: US-MALLINCKRODT-T201901618

PATIENT
  Sex: Female
  Weight: 67 kg

DRUGS (6)
  1. BENLYSTA [Concomitant]
     Active Substance: BELIMUMAB
     Indication: RHEUMATOID ARTHRITIS
     Dosage: 463MG OVER 1 HOUR EVERY 4 WEEKS AS DIRECTED
     Route: 042
     Dates: start: 201803
  2. BENLYSTA [Concomitant]
     Active Substance: BELIMUMAB
     Indication: SYSTEMIC LUPUS ERYTHEMATOSUS
     Dosage: 630 MG, MONTHLY (Q4W)
     Route: 065
  3. BENLYSTA [Concomitant]
     Active Substance: BELIMUMAB
     Dosage: 630 MILLIGRAM, EVERY 4 WEEKS AS DIRECTED
     Route: 065
     Dates: start: 201901
  4. H.P. ACTHAR [Suspect]
     Active Substance: CORTICOTROPIN
     Indication: RHEUMATOID ARTHRITIS
     Dosage: 80 UNITS (1 ML), EVERY 72 HOURS
     Route: 058
     Dates: start: 201901, end: 2019
  5. H.P. ACTHAR [Suspect]
     Active Substance: CORTICOTROPIN
     Dosage: 80 UNITS (5 ML)
     Route: 058
     Dates: start: 201909
  6. H.P. ACTHAR [Suspect]
     Active Substance: CORTICOTROPIN
     Indication: SYSTEMIC LUPUS ERYTHEMATOSUS
     Dosage: 80 UNITS (1 ML), EVERY 72 HOURS AS DIRECTED
     Route: 058
     Dates: start: 201902, end: 2019

REACTIONS (8)
  - Infection [Unknown]
  - Treatment noncompliance [Unknown]
  - Dyspnoea [Unknown]
  - Hypersensitivity [Unknown]
  - Systemic lupus erythematosus [Unknown]
  - Weight increased [Unknown]
  - Malaise [Unknown]
  - Product dose omission [Unknown]

NARRATIVE: CASE EVENT DATE: 2019
